FAERS Safety Report 6914179-0 (Version None)
Quarter: 2010Q3

REPORT INFORMATION
  Report Type: 
  Country: None (occurrence: None)
  Receive Date: 20100809
  Receipt Date: 20100730
  Transmission Date: 20110219
  Serious: Yes (Hospitalization)
  Sender: FDA-Public Use
  Company Number: A0798995A

PATIENT
  Age: 71 Year
  Sex: Female

DRUGS (14)
  1. AVANDIA [Suspect]
     Indication: DIABETES MELLITUS
     Dosage: 8MG PER DAY
     Route: 048
     Dates: start: 20021101
  2. GLIPIZIDE [Concomitant]
  3. FERROUS SULFATE TAB [Concomitant]
  4. MEDROL [Concomitant]
  5. KEFLEX [Concomitant]
  6. COUMADIN [Concomitant]
  7. LOTREL [Concomitant]
  8. HYDROCHLOROTHIAZIDE [Concomitant]
  9. ATENOLOL [Concomitant]
  10. VYTORIN [Concomitant]
  11. PLAVIX [Concomitant]
  12. ACTOS [Concomitant]
  13. CIPROFLOXACIN [Concomitant]
  14. PHENERGAN [Concomitant]

REACTIONS (5)
  - AMNESIA [None]
  - CEREBROVASCULAR ACCIDENT [None]
  - CORONARY ARTERY DISEASE [None]
  - FALL [None]
  - MYOCARDIAL INFARCTION [None]
